FAERS Safety Report 17667365 (Version 1)
Quarter: 2020Q2

REPORT INFORMATION
  Report Type: Spontaneous
  Country: GB (occurrence: GB)
  Receive Date: 20200414
  Receipt Date: 20200414
  Transmission Date: 20200713
  Serious: Yes (Other)
  Sender: FDA-Public Use
  Company Number: GB-MYLANLABS-2020M1037530

PATIENT
  Age: 37 Year
  Sex: Female
  Weight: 57 kg

DRUGS (2)
  1. LAMOTRIGINE. [Suspect]
     Active Substance: LAMOTRIGINE
     Indication: EPILEPSY
     Dosage: 150 MILLIGRAM, QD
     Route: 048
     Dates: start: 20170501, end: 20190330
  2. TEGRETOL [Concomitant]
     Active Substance: CARBAMAZEPINE
     Dosage: UNK

REACTIONS (2)
  - Anxiety [Recovered/Resolved]
  - Morbid thoughts [Recovered/Resolved]

NARRATIVE: CASE EVENT DATE: 20180501
